FAERS Safety Report 20735053 (Version 1)
Quarter: 2022Q2

REPORT INFORMATION
  Report Type: Spontaneous
  Country: NL (occurrence: NL)
  Receive Date: 20220421
  Receipt Date: 20220421
  Transmission Date: 20220720
  Serious: Yes (Death, Hospitalization)
  Sender: FDA-Public Use
  Company Number: NL-TEVA-2022-NL-2028180

PATIENT
  Age: 5 Year
  Sex: Male

DRUGS (3)
  1. VINCRISTINE [Suspect]
     Active Substance: VINCRISTINE
     Indication: Nephroblastoma
     Dosage: SIOP 2001 PROTOCOL
     Route: 065
  2. DOXORUBICIN [Suspect]
     Active Substance: DOXORUBICIN
     Indication: Nephroblastoma
     Dosage: SIOP 2001 PROTOCOL
     Route: 065
  3. DACTINOMYCIN [Suspect]
     Active Substance: DACTINOMYCIN
     Indication: Nephroblastoma
     Dosage: SIOP 2001 PROTOCOL
     Route: 065

REACTIONS (2)
  - Candida infection [Fatal]
  - Gastrointestinal necrosis [Fatal]
